FAERS Safety Report 14150431 (Version 1)
Quarter: 2017Q4

REPORT INFORMATION
  Report Type: Spontaneous
  Country: US (occurrence: US)
  Receive Date: 20171101
  Receipt Date: 20171101
  Transmission Date: 20180321
  Serious: No
  Sender: FDA-Public Use
  Company Number: US-GREER LABORATORIES, INC.-2032993

PATIENT
  Age: 67 Year
  Sex: Female
  Weight: 70 kg

DRUGS (27)
  1. MOLDS, RUSTS AND SMUTS, HELMINTHOSPORIUM SOLANI [Suspect]
     Active Substance: HELMINTHOSPORIUM SOLANI
     Route: 058
     Dates: start: 20160528
  2. POLLENS - TREES, OLIVE, RUSSIAN ELAEAGNUS ANGUSTIFOLIA [Suspect]
     Active Substance: ELAEAGNUS ANGUSTIFOLIA POLLEN
     Route: 058
     Dates: start: 20160528
  3. VITAMIN D [Concomitant]
     Active Substance: CHOLECALCIFEROL
     Route: 048
  4. ZANTAC 150 ACID REDUCER [Concomitant]
     Active Substance: RANITIDINE HYDROCHLORIDE
     Route: 048
  5. POLLENS - TREES, ALDER, WHITE, ALNUS RHOMBIFOLIA [Suspect]
     Active Substance: ALNUS RHOMBIFOLIA POLLEN
     Route: 058
     Dates: start: 20160528
  6. ACETYLSALICYLIC ACID [Concomitant]
     Active Substance: ASPIRIN
     Route: 048
  7. POLLENS - WEEDS AND GARDEN PLANTS, SHORT RAGWEED, AMBROSIA ARTEMISIIFOLIA [Suspect]
     Active Substance: AMBROSIA ARTEMISIIFOLIA POLLEN
     Route: 058
     Dates: start: 20160528
  8. POLLENS - WEEDS AND GARDEN PLANTS, PIGWEED, ROUGH REDROOT AMARANTHUS RETROFLEXUS [Suspect]
     Active Substance: AMARANTHUS RETROFLEXUS POLLEN
     Route: 058
     Dates: start: 20160528
  9. POLLENS - TREES, BIRCH, SPRING, BETULA OCCIDENTALIS [Suspect]
     Active Substance: BETULA OCCIDENTALIS POLLEN
     Route: 058
     Dates: start: 20160528
  10. LEVOTHROXINE SODIUM [Concomitant]
     Active Substance: LEVOTHYROXINE SODIUM
     Route: 048
  11. STANDARDIZED CAT HAIR [Suspect]
     Active Substance: FELIS CATUS HAIR
     Route: 058
     Dates: start: 20160528
  12. POLLENS - WEEDS AND GARDEN PLANTS, PLANTAIN, ENGLISH PLANTAGO LANCEOLATA [Suspect]
     Active Substance: PLANTAGO LANCEOLATA POLLEN
     Route: 058
     Dates: start: 20160528
  13. POLLENS - WEEDS AND GARDEN PLANTS, FIREBUSH (KOCHIA), KOCHIA SCOPARIA [Suspect]
     Active Substance: BASSIA SCOPARIA POLLEN
     Route: 058
     Dates: start: 20160528
  14. SAGE MIXTURE [Suspect]
     Active Substance: ARTEMISIA ABSINTHIUM POLLEN\ARTEMISIA LUDOVICIANA POLLEN\ARTEMISIA TRIDENTATA POLLEN\ARTEMISIA VULGARIS POLLEN
     Route: 058
     Dates: start: 20160528
  15. UTAH JUNIPER POLLEN [Suspect]
     Active Substance: JUNIPERUS OSTEOSPERMA POLLEN
     Route: 058
     Dates: start: 20160528
  16. MAGNESIUM OXIDE. [Concomitant]
     Active Substance: MAGNESIUM OXIDE
     Route: 048
  17. STANDARDIZED MITE DERMATOPHAGOIDES FARINAE [Suspect]
     Active Substance: DERMATOPHAGOIDES FARINAE
     Route: 058
     Dates: start: 20170528
  18. STANDARDIZED TIMOTHY GRASS [Suspect]
     Active Substance: PHLEUM PRATENSE POLLEN
     Route: 058
     Dates: start: 20170528
  19. POLLENS - WEEDS AND GARDEN PLANTS, LAMBS QUARTERS CHENOPODIUM ALBUM [Suspect]
     Active Substance: CHENOPODIUM ALBUM POLLEN
     Route: 058
     Dates: start: 20160528
  20. POLLENS - WEEDS AND GARDEN PLANTS, RUSSIAN THISTLE SALSOLA KALI [Suspect]
     Active Substance: SALSOLA KALI POLLEN
     Route: 058
     Dates: start: 20160528
  21. POPULUS DELTOIDES SSP MONILIFERA POLLEN [Suspect]
     Active Substance: POPULUS DELTOIDES SUBSP. MONILIFERA POLLEN
     Route: 058
     Dates: start: 20160528
  22. LEVOTHYROXINE SODIUM. [Concomitant]
     Active Substance: LEVOTHYROXINE SODIUM
     Route: 048
  23. STANDARDIZED MITE, DERMATOPHAGOIDES PTERONYSSINUS [Suspect]
     Active Substance: DERMATOPHAGOIDES PTERONYSSINUS
     Route: 058
     Dates: start: 20160528
  24. VITAMIN B12 [Concomitant]
     Active Substance: CYANOCOBALAMIN
     Route: 048
  25. MOLDS, RUSTS AND SMUTS, ALTERNARIA TENUIS (ALTERNATA) [Suspect]
     Active Substance: ALTERNARIA ALTERNATA
     Indication: MULTIPLE ALLERGIES
     Route: 058
     Dates: start: 20160528
  26. POLLENS - TREES, WALNUT, BLACK JUGLANS NIGRA [Suspect]
     Active Substance: JUGLANS NIGRA POLLEN
     Route: 058
     Dates: start: 20160528
  27. WHITE OAK [Suspect]
     Active Substance: QUERCUS ALBA POLLEN
     Route: 058
     Dates: start: 20160528

REACTIONS (5)
  - Throat tightness [Not Recovered/Not Resolved]
  - Dysphagia [Not Recovered/Not Resolved]
  - Food allergy [Not Recovered/Not Resolved]
  - Alopecia [Not Recovered/Not Resolved]
  - Weight decreased [Not Recovered/Not Resolved]

NARRATIVE: CASE EVENT DATE: 20161201
